FAERS Safety Report 21469499 (Version 3)
Quarter: 2022Q4

REPORT INFORMATION
  Report Type: Report from Study
  Country: US (occurrence: US)
  Receive Date: 20221018
  Receipt Date: 20221203
  Transmission Date: 20230113
  Serious: Yes (Other)
  Sender: FDA-Public Use
  Company Number: US-ABBVIE-4137490

PATIENT
  Age: 60 Year
  Sex: Male

DRUGS (2)
  1. IMBRUVICA [Suspect]
     Active Substance: IBRUTINIB
     Indication: Chronic lymphocytic leukaemia
     Route: 048
     Dates: start: 202209, end: 202209
  2. IMBRUVICA [Suspect]
     Active Substance: IBRUTINIB
     Indication: Chronic lymphocytic leukaemia
     Route: 048
     Dates: start: 20220909

REACTIONS (9)
  - Neoplasm malignant [Unknown]
  - Arthralgia [Unknown]
  - Lymphadenopathy [Unknown]
  - Gout [Unknown]
  - White blood cell count increased [Not Recovered/Not Resolved]
  - Hypertension [Unknown]
  - Fatigue [Unknown]
  - Gout [Recovering/Resolving]
  - Pain [Unknown]

NARRATIVE: CASE EVENT DATE: 20220901
